FAERS Safety Report 7377636-1 (Version None)
Quarter: 2011Q1

REPORT INFORMATION
  Report Type: 
  Country: None (occurrence: None)
  Receive Date: 20110328
  Receipt Date: 20110316
  Transmission Date: 20110831
  Serious: Yes (Other)
  Sender: FDA-Public Use
  Company Number: DK-JNJFOC-20100709012

PATIENT
  Sex: Female
  Weight: 59 kg

DRUGS (8)
  1. RISPERDAL [Suspect]
     Indication: ATTENTION DEFICIT/HYPERACTIVITY DISORDER
     Route: 048
  2. ESTROFEM N [Suspect]
     Route: 048
  3. ESTROFEM N [Suspect]
     Dosage: FOR 5 DAYS
     Route: 048
  4. ESTROFEM N [Suspect]
     Route: 048
  5. TRISEKVENS [Concomitant]
     Indication: DELAYED PUBERTY
     Route: 048
  6. ESTROFEM N [Suspect]
     Indication: DELAYED PUBERTY
     Route: 048
  7. STRATTERA [Concomitant]
     Indication: ATTENTION DEFICIT/HYPERACTIVITY DISORDER
     Route: 048
  8. RISPERDAL [Suspect]
     Indication: IMPULSE-CONTROL DISORDER
     Route: 048

REACTIONS (3)
  - GALACTORRHOEA [None]
  - NUCLEAR MAGNETIC RESONANCE IMAGING ABNORMAL [None]
  - BLOOD PROLACTIN INCREASED [None]
